FAERS Safety Report 13779782 (Version 1)
Quarter: 2017Q3

REPORT INFORMATION
  Report Type: Spontaneous
  Country: GB (occurrence: GB)
  Receive Date: 20170723
  Receipt Date: 20170723
  Transmission Date: 20171127
  Serious: Yes (Other)
  Sender: FDA-Public Use
  Company Number: GB-TORRENT-00015434

PATIENT
  Age: 6 Year
  Sex: Male
  Weight: 18 kg

DRUGS (5)
  1. LAXIDO [Concomitant]
     Active Substance: POLYETHYLENE GLYCOL 3350\POTASSIUM CHLORIDE\SODIUM BICARBONATE\SODIUM CHLORIDE
  2. VENTOLIN [Concomitant]
     Active Substance: ALBUTEROL SULFATE
  3. CLENIL MODULITE [Concomitant]
     Active Substance: BECLOMETHASONE DIPROPIONATE
  4. CHLORAMPHENICOL [Concomitant]
     Active Substance: CHLORAMPHENICOL
  5. MONTELUKAST [Suspect]
     Active Substance: MONTELUKAST SODIUM

REACTIONS (2)
  - Depression [Recovered/Resolved]
  - Abnormal behaviour [Unknown]

NARRATIVE: CASE EVENT DATE: 20160808
